FAERS Safety Report 9826867 (Version 1)
Quarter: 2013Q4

REPORT INFORMATION
  Report Type: Spontaneous
  Country: GB (occurrence: None)
  Receive Date: 20131112
  Receipt Date: 20131112
  Transmission Date: 20140711
  Serious: Yes (Other)
  Sender: FDA-Public Use
  Company Number: E2B_00000818

PATIENT
  Age: 44 Year
  Sex: Female
  Weight: 78 kg

DRUGS (2)
  1. LISINOPRIL [Suspect]
     Indication: HYPERTENSION
     Dosage: UNKNOWN (2.5 MG, UNKNOWN), ORAL
     Route: 048
     Dates: start: 20130121, end: 20130128
  2. DEXAMFETAMINE (UNKNOWN) [Concomitant]

REACTIONS (2)
  - Blister [None]
  - Stevens-Johnson syndrome [None]
